FAERS Safety Report 5746212-6 (Version None)
Quarter: 2008Q2

REPORT INFORMATION
  Report Type: 
  Country: None (occurrence: None)
  Receive Date: 20080522
  Receipt Date: 20080516
  Transmission Date: 20081010
  Serious: Yes (Death)
  Sender: FDA-Public Use
  Company Number: FR-ROCHE-561966

PATIENT
  Sex: Male
  Weight: 43 kg

DRUGS (20)
  1. ZENAPAX [Suspect]
     Indication: GRAFT VERSUS HOST DISEASE
     Dosage: FORM: INJECTABLE SOLUTION.
     Route: 042
     Dates: start: 20080107, end: 20080107
  2. CELLCEPT [Suspect]
     Indication: PROPHYLAXIS AGAINST TRANSPLANT REJECTION
     Dosage: FORM: INJECTABLE SOLUTION.
     Route: 042
     Dates: start: 20071206, end: 20080130
  3. SANDIMMUNE [Suspect]
     Indication: PROPHYLAXIS AGAINST TRANSPLANT REJECTION
     Dosage: FORM: INJECTABLE SOLUTION.
     Route: 042
     Dates: start: 20071210
  4. SOLU-MEDROL [Suspect]
     Indication: PROPHYLAXIS AGAINST TRANSPLANT REJECTION
     Route: 042
     Dates: start: 20071210
  5. LOXEN [Concomitant]
  6. PLITICAN [Concomitant]
  7. VANCOCIN HCL [Concomitant]
  8. FORTUM [Concomitant]
  9. CANCIDAS [Concomitant]
  10. ZOVIRAX [Concomitant]
  11. MOPRAL [Concomitant]
  12. ACETAMINOPHEN [Concomitant]
  13. VITAMINE K [Concomitant]
  14. SPASFON [Concomitant]
  15. SPASFON [Concomitant]
  16. NUBAIN [Concomitant]
  17. FUNGIZONE [Concomitant]
  18. ATARAX [Concomitant]
  19. LEXOMIL [Concomitant]
  20. TIORFAN [Concomitant]
     Route: 048
     Dates: end: 20080108

REACTIONS (3)
  - ACUTE PULMONARY OEDEMA [None]
  - ACUTE RESPIRATORY DISTRESS SYNDROME [None]
  - TOXOPLASMOSIS [None]
